FAERS Safety Report 23182686 (Version 1)
Quarter: 2023Q4

REPORT INFORMATION
  Report Type: Spontaneous
  Country: US (occurrence: US)
  Receive Date: 20231114
  Receipt Date: 20231114
  Transmission Date: 20240109
  Serious: Yes (Hospitalization)
  Sender: FDA-Public Use
  Company Number: US-PFIZER INC-202300361639

PATIENT
  Age: 61 Year
  Sex: Female

DRUGS (1)
  1. INLYTA [Suspect]
     Active Substance: AXITINIB
     Dosage: 5 MG, 2X/DAY (5MG TABLET TAKE 2 TABLETS (10MG) BY MOUTH TWICE DAILY)
     Route: 048
     Dates: start: 20230217, end: 202310

REACTIONS (3)
  - Pancreatectomy [Recovering/Resolving]
  - Splenectomy [Recovering/Resolving]
  - Neoplasm progression [Recovering/Resolving]

NARRATIVE: CASE EVENT DATE: 20231001
